FAERS Safety Report 5411892-1 (Version None)
Quarter: 2007Q3

REPORT INFORMATION
  Report Type: 
  Country: None (occurrence: None)
  Receive Date: 20070810
  Receipt Date: 20070810
  Transmission Date: 20080115
  Serious: Yes (Other)
  Sender: FDA-Public Use
  Company Number: None

PATIENT
  Age: 27 Year
  Sex: Female
  Weight: 73 kg

DRUGS (1)
  1. CHANTIX [Suspect]
     Indication: SMOKING CESSATION THERAPY
     Dosage: 0.5MG 1-2 TABS DAILY ORAL 1 MG DAILY ORAL
     Route: 048
     Dates: start: 20070524, end: 20070605

REACTIONS (2)
  - PAIN [None]
  - VOMITING [None]
